FAERS Safety Report 8282085-8 (Version None)
Quarter: 2012Q2

REPORT INFORMATION
  Report Type: 
  Country: None (occurrence: None)
  Receive Date: 20120413
  Receipt Date: 20120330
  Transmission Date: 20120825
  Serious: Yes (Hospitalization, Other)
  Sender: FDA-Public Use
  Company Number: CO-AMGEN-COLSP2012002219

PATIENT
  Age: 65 Year
  Sex: Male

DRUGS (8)
  1. METHOTREXATE [Suspect]
     Indication: RHEUMATOID ARTHRITIS
     Dosage: 1 CM PER WEEK
  2. ENBREL [Suspect]
     Dosage: 50 MG, QWK
     Route: 058
     Dates: start: 20070331
  3. LOSARTAN POTASSIUM [Concomitant]
     Indication: HYPERTENSION
     Dosage: 50 MG EVERY 12 HOURS
     Route: 048
     Dates: start: 20020101
  4. ENBREL [Suspect]
     Indication: RHEUMATOID ARTHRITIS
     Dosage: 50 MG, WEEKLY
     Route: 058
     Dates: start: 20050101
  5. LEVOTHYROXINE SODIUM [Concomitant]
     Indication: THYROID DISORDER
     Dosage: 100 MG, 1X/DAY
     Dates: start: 20070101
  6. LAMOTRGINE [Concomitant]
     Indication: EPILEPSY
     Dosage: ONE TABLET PER DAY
     Dates: start: 20080101
  7. ENBREL [Suspect]
     Dosage: 50 MG, WEEKLY
     Route: 058
     Dates: start: 20100101
  8. LAMOTRGINE [Concomitant]
     Dosage: 100 MG, UNK
     Dates: start: 20070101

REACTIONS (2)
  - EPILEPSY [None]
  - LIMB OPERATION [None]
